FAERS Safety Report 9033201 (Version 1)
Quarter: 2013Q1

REPORT INFORMATION
  Report Type: Spontaneous
  Country: PT (occurrence: PT)
  Receive Date: 20130128
  Receipt Date: 20130128
  Transmission Date: 20140127
  Serious: Yes (Life-Threatening, Disabling)
  Sender: FDA-Public Use
  Company Number: PT-ASTRAZENECA-2013SE05384

PATIENT
  Age: 10486 Day
  Sex: Male
  Weight: 60 kg

DRUGS (13)
  1. SEROQUEL [Suspect]
     Indication: DEPRESSION
     Route: 048
     Dates: start: 201207
  2. DIAZEPAM [Concomitant]
     Indication: ANXIETY
     Route: 048
     Dates: start: 2011
  3. TEGRETOL CR [Concomitant]
  4. LUDIOMIL [Concomitant]
  5. AMOXICILLIN+CLAVULANIC ACID SANDOZ [Concomitant]
  6. METAMIZOLE MYLAN [Concomitant]
  7. ABILIFY [Concomitant]
  8. ULTRAMIDOL [Concomitant]
  9. RISPERIDONE [Concomitant]
  10. LIVETAN [Concomitant]
  11. ANAFRANIL [Concomitant]
  12. TRAMADOL ACTAVIS [Concomitant]
  13. TRAMADOL+PARACETAMOL [Concomitant]

REACTIONS (14)
  - Suicidal ideation [Unknown]
  - Anger [Unknown]
  - Homicidal ideation [Unknown]
  - Abnormal behaviour [Unknown]
  - Toxicity to various agents [Unknown]
  - Altered state of consciousness [Unknown]
  - Weight decreased [Unknown]
  - Insomnia [Unknown]
  - Abdominal pain [Unknown]
  - Nausea [Unknown]
  - Breast pain [Unknown]
  - Aggression [Unknown]
  - Vomiting [Unknown]
  - Fatigue [Unknown]
